FAERS Safety Report 8825491 (Version 2)
Quarter: 2013Q1

REPORT INFORMATION
  Report Type: Spontaneous
  Country: US (occurrence: US)
  Receive Date: 20121004
  Receipt Date: 20130124
  Transmission Date: 20140127
  Serious: Yes (Other)
  Sender: FDA-Public Use
  Company Number: US-FRI-1000039122

PATIENT
  Sex: Female

DRUGS (4)
  1. VIIBRYD [Suspect]
     Indication: DEPRESSION
     Dosage: 10 MG
     Route: 048
     Dates: start: 201209
  2. LISINOPRIL [Concomitant]
  3. DOXYCYCLINE [Concomitant]
  4. CLARITIN [Concomitant]
     Indication: HYPERSENSITIVITY

REACTIONS (5)
  - Haemorrhage [Recovered/Resolved]
  - Mania [Recovered/Resolved]
  - Tension [Recovered/Resolved]
  - Tremor [Recovered/Resolved]
  - Haematochezia [Recovered/Resolved]
